FAERS Safety Report 7141432-0 (Version None)
Quarter: 2010Q4

REPORT INFORMATION
  Report Type: 
  Country: None (occurrence: None)
  Receive Date: 20101203
  Receipt Date: 20101203
  Transmission Date: 20110411
  Serious: Yes (Hospitalization)
  Sender: FDA-Public Use
  Company Number: None

PATIENT
  Age: 46 Year
  Sex: Male
  Weight: 80.2867 kg

DRUGS (1)
  1. ULORIC [Suspect]
     Indication: GOUT
     Dosage: 1 TABLET DAILY PO
     Route: 048
     Dates: start: 20101201, end: 20101201

REACTIONS (7)
  - AMNESIA [None]
  - COLD SWEAT [None]
  - DIZZINESS [None]
  - DYSARTHRIA [None]
  - EYE ROLLING [None]
  - HYPOVENTILATION [None]
  - TREMOR [None]
